FAERS Safety Report 5930393-5 (Version None)
Quarter: 2008Q4

REPORT INFORMATION
  Report Type: 
  Country: None (occurrence: None)
  Receive Date: 20081022
  Receipt Date: 20081009
  Transmission Date: 20090506
  Serious: Yes (Other)
  Sender: FDA-Public Use
  Company Number: US024850

PATIENT
  Age: 1 Year
  Sex: Female

DRUGS (1)
  1. FENTORA [Suspect]
     Dosage: ONCE BUCCAL
     Route: 002
     Dates: start: 20080511, end: 20080511

REACTIONS (3)
  - ACCIDENTAL DRUG INTAKE BY CHILD [None]
  - SOMNOLENCE [None]
  - UNRESPONSIVE TO STIMULI [None]
